FAERS Safety Report 4556831-0 (Version None)
Quarter: 2005Q1

REPORT INFORMATION
  Report Type: 
  Country: None (occurrence: None)
  Receive Date: 20050114
  Receipt Date: 20041122
  Transmission Date: 20050727
  Serious: Yes (Death)
  Sender: FDA-Public Use
  Company Number: RB-1140-2004

PATIENT
  Age: 26 Year
  Sex: Male

DRUGS (5)
  1. BUPRENORPHINE HCL [Suspect]
     Route: 060
  2. OLANZAPINE [Concomitant]
  3. CYAMEMAZINE [Concomitant]
  4. SERTRALINE HYDROCHLORIDE [Concomitant]
  5. DIAZEPAM [Concomitant]

REACTIONS (1)
  - COMPLETED SUICIDE [None]
